FAERS Safety Report 8102116-5 (Version None)
Quarter: 2012Q1

REPORT INFORMATION
  Report Type: 
  Country: None (occurrence: None)
  Receive Date: 20120131
  Receipt Date: 20070524
  Transmission Date: 20120608
  Serious: Yes (Other)
  Sender: FDA-Public Use
  Company Number: US-SANTEN INC.-INC-12-000003

PATIENT
  Age: 60 Year
  Sex: Male

DRUGS (8)
  1. LUMIGAN [Suspect]
     Indication: GLAUCOMA
  2. BENZALKONIUM CHLORIDE [Suspect]
  3. XALATAN [Suspect]
     Indication: GLAUCOMA
  4. BRIMONIDINE TARTRATE [Suspect]
     Indication: GLAUCOMA
  5. AZOPT [Suspect]
     Indication: GLAUCOMA
  6. TRUSOPT [Suspect]
     Indication: GLAUCOMA
  7. TIMOLOL MALEATE [Suspect]
     Indication: GLAUCOMA
     Route: 047
  8. PILOCARPINE [Suspect]
     Indication: GLAUCOMA

REACTIONS (5)
  - CONJUNCTIVAL SCAR [None]
  - CONJUNCTIVAL HYPERAEMIA [None]
  - CHEMICAL EYE INJURY [None]
  - CONJUNCTIVAL IRRITATION [None]
  - CONJUNCTIVITIS ALLERGIC [None]
